FAERS Safety Report 7226945-5 (Version None)
Quarter: 2011Q1

REPORT INFORMATION
  Report Type: 
  Country: None (occurrence: None)
  Receive Date: 20110105
  Receipt Date: 20101222
  Transmission Date: 20110831
  Serious: Yes (Other)
  Sender: FDA-Public Use
  Company Number: 1000017936

PATIENT
  Sex: Female

DRUGS (3)
  1. TRAZODONE (TRAZODONE) [Suspect]
  2. METOPROLOL SUCCINATE [Suspect]
  3. ESCITALOPRAM [Suspect]
     Indication: DEPRESSION
     Dosage: 20 MG (20 MG, 1 IN 1 D)

REACTIONS (2)
  - ELECTROCARDIOGRAM QT PROLONGED [None]
  - CARDIAC DISORDER [None]
